FAERS Safety Report 24369692 (Version 1)
Quarter: 2024Q3

REPORT INFORMATION
  Report Type: Report from Study
  Country: US (occurrence: US)
  Receive Date: 20240927
  Receipt Date: 20240927
  Transmission Date: 20241016
  Serious: No
  Sender: ROCHE
  Company Number: US-ROCHE-3488749

PATIENT
  Age: 84 Year
  Sex: Female
  Weight: 61.23 kg

DRUGS (2)
  1. LUCENTIS [Suspect]
     Active Substance: RANIBIZUMAB
     Indication: Retinal vein occlusion
     Dosage: LAST INJECTION 05/JAN/2024? FREQUENCY TEXT:EVERY 4 TO 6 WEEK
     Route: 050
  2. LUCENTIS [Suspect]
     Active Substance: RANIBIZUMAB
     Indication: Macular oedema

REACTIONS (4)
  - Visual impairment [Not Recovered/Not Resolved]
  - Eye disorder [Not Recovered/Not Resolved]
  - Visual impairment [Not Recovered/Not Resolved]
  - Dyslexia [Not Recovered/Not Resolved]

NARRATIVE: CASE EVENT DATE: 20230101
